FAERS Safety Report 25483524 (Version 1)
Quarter: 2025Q2

REPORT INFORMATION
  Report Type: Other
  Country: CA (occurrence: CA)
  Receive Date: 20250626
  Receipt Date: 20250626
  Transmission Date: 20250716
  Serious: Yes (Life-Threatening, Hospitalization)
  Sender: EMERGENT BIOSOLUTIONS
  Company Number: CA-EMERGENT BIOSOLUTIONS-25000081

PATIENT
  Age: 23 Year
  Sex: Female

DRUGS (1)
  1. NALOXONE HYDROCHLORIDE [Suspect]
     Active Substance: NALOXONE HYDROCHLORIDE
     Indication: Toxicity to various agents

REACTIONS (1)
  - Therapy non-responder [Unknown]
